FAERS Safety Report 12308330 (Version 1)
Quarter: 2016Q2

REPORT INFORMATION
  Report Type: Spontaneous
  Country: IT (occurrence: IT)
  Receive Date: 20160426
  Receipt Date: 20160426
  Transmission Date: 20160815
  Serious: Yes (Hospitalization, Other)
  Sender: FDA-Public Use
  Company Number: PHHY2016IT038393

PATIENT
  Age: 33 Year
  Sex: Female

DRUGS (4)
  1. CICLOSPORIN [Concomitant]
     Active Substance: CYCLOSPORINE
     Indication: PRODUCT USED FOR UNKNOWN INDICATION
     Dosage: 160 MG, QD
     Route: 065
     Dates: start: 2003
  2. EXJADE [Suspect]
     Active Substance: DEFERASIROX
     Indication: THALASSAEMIA BETA
     Dosage: 1500 MG, QD (26 MG/KG)
     Route: 048
     Dates: start: 20120228, end: 20160316
  3. DIBASE [Concomitant]
     Active Substance: CHOLECALCIFEROL
     Indication: PRODUCT USED FOR UNKNOWN INDICATION
     Dosage: 30 DRP, WEEKLY
     Route: 065
  4. ESTROGENS [Concomitant]
     Active Substance: ESTROGENS
     Indication: PRODUCT USED FOR UNKNOWN INDICATION
     Route: 065

REACTIONS (6)
  - Decreased appetite [Unknown]
  - Nausea [Unknown]
  - Hepatitis C [Unknown]
  - Hypertransaminasaemia [Recovering/Resolving]
  - Hepatitis acute [Unknown]
  - Fatigue [Unknown]

NARRATIVE: CASE EVENT DATE: 20160315
